FAERS Safety Report 4712177-9 (Version None)
Quarter: 2005Q3

REPORT INFORMATION
  Report Type: 
  Country: None (occurrence: None)
  Receive Date: 20050712
  Receipt Date: 20050630
  Transmission Date: 20060218
  Serious: Yes (Hospitalization)
  Sender: FDA-Public Use
  Company Number: DE-ROCHE-409367

PATIENT
  Sex: Female
  Weight: 62 kg

DRUGS (3)
  1. BONDRONAT [Suspect]
     Indication: PLASMACYTOMA
     Dosage: SECON INDICATION: OSTEOPOROSIS.
     Route: 042
     Dates: start: 20040916, end: 20050527
  2. AREDIA [Concomitant]
     Indication: PLASMACYTOMA
     Dosage: SECOND INDICATION OSTEOPOROSIS.
     Route: 042
     Dates: start: 20020320, end: 20030128
  3. ZOMETA [Concomitant]
     Indication: PLASMACYTOMA
     Dosage: SECOND INDICATION: OSTEOPOROSIS.
     Route: 042
     Dates: start: 20030225, end: 20040819

REACTIONS (1)
  - PALATAL DISORDER [None]
